FAERS Safety Report 14672008 (Version 1)
Quarter: 2018Q1

REPORT INFORMATION
  Report Type: Spontaneous
  Country: US (occurrence: US)
  Receive Date: 20180323
  Receipt Date: 20180323
  Transmission Date: 20180509
  Serious: Yes (Death, Hospitalization, Other)
  Sender: FDA-Public Use
  Company Number: US-ZYDUS-019421

PATIENT
  Age: 59 Year
  Sex: Female

DRUGS (3)
  1. AZATHIOPRINE. [Suspect]
     Active Substance: AZATHIOPRINE
     Indication: COLITIS ULCERATIVE
     Route: 065
  2. MESALAZINE [Concomitant]
     Active Substance: MESALAMINE
     Indication: COLITIS ULCERATIVE
     Route: 065
  3. PREDNISONE. [Suspect]
     Active Substance: PREDNISONE
     Indication: COLITIS ULCERATIVE
     Route: 065

REACTIONS (16)
  - Abdominal pain upper [Unknown]
  - Herpes simplex hepatitis [Fatal]
  - Pyrexia [Unknown]
  - Vomiting [Unknown]
  - Hypoxia [Unknown]
  - Somnolence [Unknown]
  - Abdominal tenderness [Unknown]
  - Sepsis [Unknown]
  - Respiratory distress [Unknown]
  - Dyspnoea [Unknown]
  - Pancytopenia [Unknown]
  - Acute hepatic failure [Unknown]
  - Confusional state [Unknown]
  - Nausea [Unknown]
  - Tachycardia [Unknown]
  - Hepatic enzyme abnormal [Unknown]
